FAERS Safety Report 6834181-7 (Version None)
Quarter: 2010Q3

REPORT INFORMATION
  Report Type: 
  Country: None (occurrence: None)
  Receive Date: 20100712
  Receipt Date: 20070801
  Transmission Date: 20110219
  Serious: No
  Sender: FDA-Public Use
  Company Number: US-PFIZER INC-2007028053

PATIENT
  Sex: Female
  Weight: 52.2 kg

DRUGS (5)
  1. CHANTIX [Suspect]
     Indication: SMOKING CESSATION THERAPY
     Route: 048
     Dates: start: 20070202, end: 20070222
  2. ZETIA [Concomitant]
  3. VALSARTAN [Concomitant]
  4. OMACOR [Concomitant]
  5. SYNTHROID [Concomitant]

REACTIONS (3)
  - CHOKING [None]
  - DYSPEPSIA [None]
  - GASTROOESOPHAGEAL REFLUX DISEASE [None]
